FAERS Safety Report 4456179-9 (Version None)
Quarter: 2004Q3

REPORT INFORMATION
  Report Type: 
  Country: None (occurrence: None)
  Receive Date: 20040920
  Receipt Date: 20040907
  Transmission Date: 20050211
  Serious: Yes (Hospitalization)
  Sender: FDA-Public Use
  Company Number: 04P-056-0272944-00

PATIENT
  Age: 83 Year
  Sex: Female

DRUGS (9)
  1. TARKA [Suspect]
     Indication: MYOCARDIAL INFARCTION
     Dosage: 1 DOSAGE FORMS, 1 IN 1 D, PER ORAL
     Route: 048
     Dates: end: 20040421
  2. NIMESULIDE [Suspect]
     Dosage: PER ORAL
     Route: 048
     Dates: start: 20040308, end: 20040326
  3. NICARDIPINE HCL [Suspect]
     Indication: MYOCARDIAL INFARCTION
     Dosage: 50 MG, 2 IN 1 D, PER ORAL
     Route: 048
  4. PARACETAMOL [Suspect]
     Dosage: PER ORAL
     Route: 048
     Dates: start: 20040308, end: 20040326
  5. TETRAZEPAM [Suspect]
     Dosage: PER ORAL
     Route: 048
     Dates: start: 20040308, end: 20040326
  6. OSYROL-LASIX [Suspect]
     Indication: MYOCARDIAL INFARCTION
     Dosage: 1 DOSAGE FORMS, 1 IN 1 D, PER ORAL
     Route: 048
     Dates: end: 20040423
  7. THEOPHYLLINE [Concomitant]
  8. ACETYLSALICYLATE LYSINE [Concomitant]
  9. DIGOXIN [Concomitant]

REACTIONS (3)
  - DERMATITIS EXFOLIATIVE [None]
  - FACE OEDEMA [None]
  - PYREXIA [None]
